FAERS Safety Report 22397377 (Version 1)
Quarter: 2023Q2

REPORT INFORMATION
  Report Type: Spontaneous
  Country: FR (occurrence: FR)
  Receive Date: 20230602
  Receipt Date: 20230602
  Transmission Date: 20230722
  Serious: Yes (Hospitalization, Other)
  Sender: FDA-Public Use
  Company Number: FR-AMGEN-FRASP2023084861

PATIENT
  Age: 61 Year
  Sex: Female
  Weight: 60.5 kg

DRUGS (8)
  1. LUMAKRAS [Suspect]
     Active Substance: SOTORASIB
     Indication: Lung neoplasm malignant
     Dosage: 960 MILLIGRAM, QD (08 TABLETS)
     Route: 048
     Dates: start: 20220822
  2. LUMAKRAS [Suspect]
     Active Substance: SOTORASIB
     Dosage: 4 DOSAGE FORM, QD
     Route: 048
     Dates: start: 20221011, end: 20221110
  3. BISOPROLOL [Concomitant]
     Active Substance: BISOPROLOL
     Dosage: 2.5 MILLIGRAM, QD
  4. DAPAGLIFLOZIN [Concomitant]
     Active Substance: DAPAGLIFLOZIN
     Dosage: 10 MILLIGRAM, QD
  5. INFLUENZA VIRUS VACCINE [Concomitant]
     Active Substance: INFLUENZA VIRUS VACCINE
  6. SARS-CoV-2 vaccine [Concomitant]
     Dosage: 4 DOSES
  7. RAMIPRIL [Concomitant]
     Active Substance: RAMIPRIL
     Dosage: 2.5 MILLIGRAM, QD
  8. KARDEGIC [Concomitant]
     Active Substance: ASPIRIN DL-LYSINE
     Dosage: 75 MILLIGRAM, QD

REACTIONS (10)
  - Diarrhoea [Recovered/Resolved]
  - Hypokalaemia [Unknown]
  - Hyperkalaemia [Unknown]
  - Hypocalcaemia [Recovered/Resolved]
  - Cough [Not Recovered/Not Resolved]
  - Nausea [Unknown]
  - Abdominal pain upper [Unknown]
  - Chest pain [Recovered/Resolved]
  - Intestinal transit time abnormal [Unknown]
  - Weight decreased [Unknown]

NARRATIVE: CASE EVENT DATE: 20220829
